FAERS Safety Report 16232548 (Version 3)
Quarter: 2019Q2

REPORT INFORMATION
  Report Type: Spontaneous
  Country: US (occurrence: US)
  Receive Date: 20190424
  Receipt Date: 20190611
  Transmission Date: 20190711
  Serious: Yes (Other)
  Sender: FDA-Public Use
  Company Number: US-009507513-1904USA009718

PATIENT
  Age: 22 Year
  Sex: Female
  Weight: 85.17 kg

DRUGS (4)
  1. NEXPLANON [Suspect]
     Active Substance: ETONOGESTREL
     Dosage: 1 IMPLANT, UNK; LEFT ARM, 8 CM PROXIMALLY TO ELBOW OVER TRICEP MUSCLE, IN THE SULCUS BICIPTALIS MEDI
     Route: 058
     Dates: start: 20190402, end: 20190426
  2. SINGULAIR [Concomitant]
     Active Substance: MONTELUKAST SODIUM
  3. NEXPLANON [Suspect]
     Active Substance: ETONOGESTREL
     Indication: CONTRACEPTION
     Dosage: 1 IMPLANT, UNK; LEFT ARM IN THE SULCUS BICIPTALIS MEDIALIS
     Route: 059
     Dates: end: 2019
  4. NEXPLANON [Suspect]
     Active Substance: ETONOGESTREL
     Dosage: 1 IMPLANT, UNK
     Route: 059
     Dates: start: 20190426

REACTIONS (6)
  - Pain in extremity [Recovered/Resolved]
  - Device dislocation [Recovered/Resolved]
  - Scar [Unknown]
  - Administration site discomfort [Recovered/Resolved]
  - Device deployment issue [Recovered/Resolved]
  - Movement disorder [Recovered/Resolved]

NARRATIVE: CASE EVENT DATE: 201904
